FAERS Safety Report 10944790 (Version 1)
Quarter: 2015Q1

REPORT INFORMATION
  Report Type: Spontaneous
  Country: DE (occurrence: DE)
  Receive Date: 20150323
  Receipt Date: 20150323
  Transmission Date: 20150721
  Serious: Yes (Death, Congenital Anomaly)
  Sender: FDA-Public Use
  Company Number: DE-TEVA-546780GER

PATIENT
  Age: 1 Day
  Sex: Male
  Weight: 2.62 kg

DRUGS (1)
  1. CARBAMAZEPIN [Suspect]
     Active Substance: CARBAMAZEPINE
     Indication: EPILEPSY
     Route: 064
     Dates: start: 20040517, end: 20050217

REACTIONS (2)
  - Ebstein^s anomaly [Fatal]
  - Pulmonary valve stenosis congenital [Fatal]

NARRATIVE: CASE EVENT DATE: 20050217
